FAERS Safety Report 5598824-0 (Version None)
Quarter: 2008Q1

REPORT INFORMATION
  Report Type: 
  Country: None (occurrence: None)
  Receive Date: 20080122
  Receipt Date: 20080111
  Transmission Date: 20080703
  Serious: Yes (Hospitalization)
  Sender: FDA-Public Use
  Company Number: CA-ELI_LILLY_AND_COMPANY-CA200710004892

PATIENT
  Age: 67 Year
  Sex: Female

DRUGS (6)
  1. FORTEO [Suspect]
     Indication: OSTEOPOROSIS
     Dosage: 20 UG, DAILY (1/D)
     Route: 058
     Dates: start: 20070110, end: 20071013
  2. ELTROXIN [Concomitant]
  3. PREMARIN [Concomitant]
  4. APO-HYDROXYQUINE [Concomitant]
  5. SALAGEN [Concomitant]
  6. CALCIUM WITH VITAMIN D /00944201/ [Concomitant]

REACTIONS (3)
  - DIARRHOEA [None]
  - GASTROENTERITIS SALMONELLA [None]
  - VOMITING [None]
